FAERS Safety Report 14219318 (Version 1)
Quarter: 2017Q4

REPORT INFORMATION
  Report Type: Spontaneous
  Country: US (occurrence: US)
  Receive Date: 20171123
  Receipt Date: 20171123
  Transmission Date: 20180321
  Serious: No
  Sender: FDA-Public Use
  Company Number: US-JNJFOC-20171015429

PATIENT
  Age: 61 Year
  Sex: Male
  Weight: 111.13 kg

DRUGS (1)
  1. INVOKANA [Suspect]
     Active Substance: CANAGLIFLOZIN
     Indication: DIABETES MELLITUS
     Route: 048
     Dates: start: 201703, end: 201705

REACTIONS (4)
  - Hyperhidrosis [Unknown]
  - Insomnia [Unknown]
  - Fatigue [Unknown]
  - Nightmare [Unknown]

NARRATIVE: CASE EVENT DATE: 201703
